FAERS Safety Report 4694768-7 (Version None)
Quarter: 2005Q2

REPORT INFORMATION
  Report Type: 
  Country: None (occurrence: None)
  Receive Date: 20050620
  Receipt Date: 20050531
  Transmission Date: 20051028
  Serious: Yes (Hospitalization)
  Sender: FDA-Public Use
  Company Number: FR-BRISTOL-MYERS SQUIBB COMPANY-12989703

PATIENT
  Age: 93 Year
  Sex: Male

DRUGS (9)
  1. AMIKLIN INJ 500 MG [Suspect]
     Indication: URINARY TRACT INFECTION
     Route: 042
     Dates: start: 20050204, end: 20050207
  2. ROCEPHIN [Suspect]
     Indication: URINARY TRACT INFECTION
     Route: 042
     Dates: start: 20050204, end: 20050209
  3. SOTALOL HCL [Concomitant]
  4. OMEPRAZOLE [Concomitant]
  5. ZYRTEC [Concomitant]
  6. FORTIMEL [Concomitant]
  7. DAKTARIN [Concomitant]
     Indication: ORAL FUNGAL INFECTION
     Route: 061
  8. FRAXIPARINE [Concomitant]
  9. NOROXIN [Concomitant]
     Indication: ESCHERICHIA URINARY TRACT INFECTION
     Dates: start: 20050202, end: 20050204

REACTIONS (3)
  - DERMATITIS BULLOUS [None]
  - RENAL FAILURE [None]
  - STEVENS-JOHNSON SYNDROME [None]
